FAERS Safety Report 19235469 (Version 3)
Quarter: 2021Q2

REPORT INFORMATION
  Report Type: Report from Study
  Country: DE (occurrence: DE)
  Receive Date: 20210510
  Receipt Date: 20210617
  Transmission Date: 20210717
  Serious: Yes (Hospitalization, Other)
  Sender: FDA-Public Use
  Company Number: DE-BRISTOL-MYERS SQUIBB COMPANY-BMS-2021-043647

PATIENT
  Age: 76 Year
  Sex: Male
  Weight: 104 kg

DRUGS (25)
  1. ASPIRIN. [Concomitant]
     Active Substance: ASPIRIN
     Indication: PROPHYLAXIS
     Route: 048
     Dates: start: 20190301
  2. NOVORAPID [Concomitant]
     Active Substance: INSULIN ASPART
     Indication: ADVERSE EVENT
     Route: 058
     Dates: start: 20210416
  3. BLINDED NIVOLUMAB [Suspect]
     Active Substance: NIVOLUMAB
     Indication: MALIGNANT MELANOMA
     Dosage: ML
     Route: 065
     Dates: start: 20201019, end: 20201019
  4. VALSARTAN. [Concomitant]
     Active Substance: VALSARTAN
     Indication: PRODUCT USED FOR UNKNOWN INDICATION
     Route: 048
     Dates: start: 19800101
  5. IDEOS [Concomitant]
     Active Substance: CALCIUM CARBONATE\CHOLECALCIFEROL
     Indication: PROPHYLAXIS
     Route: 048
     Dates: start: 20201209
  6. HYDROCHLOROTHIAZID [Concomitant]
     Active Substance: HYDROCHLOROTHIAZIDE
     Indication: PRODUCT USED FOR UNKNOWN INDICATION
     Route: 048
     Dates: start: 19800101
  7. TILIDIN [Concomitant]
     Active Substance: NALOXONE HYDROCHLORIDE\TILIDINE HYDROCHLORIDE
     Indication: ADVERSE EVENT
     Dosage: 54 MILLIGRAM, PRN
     Route: 048
     Dates: start: 20210316, end: 20210528
  8. PANTOPRAZOL [PANTOPRAZOLE] [Concomitant]
     Active Substance: PANTOPRAZOLE
     Indication: PROPHYLAXIS
     Route: 048
     Dates: start: 20201110
  9. L THYROXIN [Concomitant]
     Active Substance: LEVOTHYROXINE SODIUM
     Indication: PRODUCT USED FOR UNKNOWN INDICATION
     Route: 048
     Dates: start: 20210310
  10. PREDNISOLON [PREDNISOLONE] [Concomitant]
     Active Substance: PREDNISOLONE
     Indication: ADVERSE EVENT
     Dosage: 15 MILLIGRAM
     Route: 048
     Dates: start: 20210418, end: 20210420
  11. CALCIUM D3 [Concomitant]
     Active Substance: CALCIUM\CHOLECALCIFEROL
     Indication: PROPHYLAXIS
     Route: 048
     Dates: start: 20210416
  12. CITALOPRAM [Concomitant]
     Active Substance: CITALOPRAM HYDROBROMIDE
     Indication: ADVERSE EVENT
     Route: 048
     Dates: start: 20210417
  13. PLACEBO [Suspect]
     Active Substance: UNSPECIFIED INGREDIENT
     Indication: MALIGNANT MELANOMA
     Dosage: ML
     Route: 065
     Dates: start: 20201019, end: 20201019
  14. METFORMIN [Concomitant]
     Active Substance: METFORMIN HYDROCHLORIDE
     Indication: ADVERSE EVENT
     Dosage: 1000 MILLIGRAM
     Route: 048
     Dates: start: 20210114, end: 20210518
  15. PREDNISOLON [PREDNISOLONE] [Concomitant]
     Active Substance: PREDNISOLONE
     Dosage: 30 MILLIGRAM
     Route: 048
     Dates: start: 20210405, end: 20210502
  16. ALLOPURINOL. [Concomitant]
     Active Substance: ALLOPURINOL
     Indication: PRODUCT USED FOR UNKNOWN INDICATION
     Route: 048
     Dates: start: 19800101
  17. JANUVIA [Concomitant]
     Active Substance: SITAGLIPTIN PHOSPHATE
     Indication: ADVERSE EVENT
     Route: 048
     Dates: start: 20210120
  18. TROMCARDIN [Concomitant]
     Active Substance: MAGNESIUM ASPARTATE\POTASSIUM ASPARTATE
     Indication: ADVERSE EVENT
     Route: 048
     Dates: start: 20210202
  19. LANTUS [Concomitant]
     Active Substance: INSULIN GLARGINE
     Indication: ADVERSE EVENT
     Route: 058
     Dates: start: 20210416
  20. TORASEMID [Concomitant]
     Active Substance: TORSEMIDE
     Indication: ADVERSE EVENT
     Dosage: 5 MILLIGRAM
     Route: 048
     Dates: start: 20210130, end: 20210518
  21. CARDIODORON [HYOSCYAMUS NIGER HERB;ONOPORDUM ACANTHIUM FLOWER;PRIMULA [Concomitant]
     Indication: ADVERSE EVENT
     Route: 048
     Dates: start: 20210202
  22. METOPROLOL. [Concomitant]
     Active Substance: METOPROLOL
     Indication: PRODUCT USED FOR UNKNOWN INDICATION
     Route: 048
     Dates: start: 19800101
  23. PREDNISOLON [PREDNISOLONE] [Concomitant]
     Active Substance: PREDNISOLONE
     Dosage: 10 MILLIGRAM
     Route: 048
     Dates: start: 20210421
  24. UNACID [SULTAMICILLIN TOSILATE] [Concomitant]
     Indication: PROPHYLAXIS
     Route: 042
     Dates: start: 20210416
  25. SIMVASTATIN. [Concomitant]
     Active Substance: SIMVASTATIN
     Indication: PRODUCT USED FOR UNKNOWN INDICATION
     Route: 048
     Dates: start: 19800101

REACTIONS (1)
  - Acute kidney injury [Recovered/Resolved]

NARRATIVE: CASE EVENT DATE: 20210503
